FAERS Safety Report 8544288-4 (Version None)
Quarter: 2012Q3

REPORT INFORMATION
  Report Type: 
  Country: None (occurrence: None)
  Receive Date: 20120727
  Receipt Date: 20120723
  Transmission Date: 20120928
  Serious: Yes (Other)
  Sender: FDA-Public Use
  Company Number: AU-PFIZER INC-2012177068

PATIENT
  Sex: Female

DRUGS (1)
  1. LYRICA [Suspect]
     Dosage: 75 MG, UNK
     Dates: start: 20120722

REACTIONS (5)
  - DIZZINESS [None]
  - VERTIGO [None]
  - BALANCE DISORDER [None]
  - TREMOR [None]
  - ABASIA [None]
